FAERS Safety Report 5331680-4 (Version None)
Quarter: 2007Q2

REPORT INFORMATION
  Report Type: 
  Country: None (occurrence: None)
  Receive Date: 20070522
  Receipt Date: 20070510
  Transmission Date: 20071010
  Serious: Yes (Other)
  Sender: FDA-Public Use
  Company Number: BR-MERCK-0705BRA00049

PATIENT
  Age: 76 Year
  Sex: Female

DRUGS (1)
  1. ALDOMET [Suspect]
     Route: 065

REACTIONS (2)
  - CEREBROVASCULAR ACCIDENT [None]
  - RENAL DISORDER [None]
